FAERS Safety Report 7432809-4 (Version None)
Quarter: 2011Q2

REPORT INFORMATION
  Report Type: 
  Country: None (occurrence: None)
  Receive Date: 20110422
  Receipt Date: 20110420
  Transmission Date: 20111010
  Serious: Yes (Other)
  Sender: FDA-Public Use
  Company Number: CA-ROCHE-772645

PATIENT
  Sex: Female

DRUGS (2)
  1. AVASTIN [Suspect]
     Route: 042
     Dates: start: 20090101, end: 20110309
  2. FOLFIRI REGIMEN [Suspect]
     Route: 065
     Dates: start: 20090101, end: 20110301

REACTIONS (1)
  - DISEASE PROGRESSION [None]
